FAERS Safety Report 5241225-5 (Version None)
Quarter: 2007Q1

REPORT INFORMATION
  Report Type: 
  Country: None (occurrence: None)
  Receive Date: 20070220
  Receipt Date: 20070208
  Transmission Date: 20070707
  Serious: Yes (Death, Hospitalization)
  Sender: FDA-Public Use
  Company Number: BR-BRISTOL-MYERS SQUIBB COMPANY-13630991

PATIENT
  Age: 51 Year
  Sex: Male

DRUGS (3)
  1. ATAZANAVIR [Suspect]
     Indication: HIV INFECTION
     Route: 048
     Dates: start: 20060705, end: 20070125
  2. RITONAVIR [Suspect]
     Route: 048
     Dates: start: 20060705, end: 20070125
  3. TENOFOVIR DF + EMTRICITABINE [Suspect]
     Dosage: TENOFOVIR DF 200 MG + EMTRICITABINE 300 MG
     Route: 048
     Dates: start: 20060705, end: 20070125

REACTIONS (10)
  - ASCITES [None]
  - BACK PAIN [None]
  - BILE DUCT STONE [None]
  - CHOLANGITIS [None]
  - CHOLECYSTITIS [None]
  - CHOLESTASIS [None]
  - HEPATORENAL SYNDROME [None]
  - METABOLIC ENCEPHALOPATHY [None]
  - MULTI-ORGAN FAILURE [None]
  - PYREXIA [None]
